FAERS Safety Report 6203223-4 (Version None)
Quarter: 2009Q2

REPORT INFORMATION
  Report Type: 
  Country: None (occurrence: None)
  Receive Date: 20090527
  Receipt Date: 20090515
  Transmission Date: 20091009
  Serious: Yes (Hospitalization)
  Sender: FDA-Public Use
  Company Number: US-EISAI INC.-E2080-00156-SPO-US

PATIENT
  Age: 33 Year
  Sex: Female
  Weight: 55 kg

DRUGS (12)
  1. BANZEL [Suspect]
     Indication: LENNOX-GASTAUT SYNDROME
     Route: 048
     Dates: start: 20090422, end: 20090505
  2. LAMICTAL [Interacting]
     Indication: LENNOX-GASTAUT SYNDROME
     Route: 048
     Dates: start: 20040616, end: 20090505
  3. CALCIFEROL [Concomitant]
     Route: 048
     Dates: start: 20060408
  4. CALCIUM CARBONATE [Concomitant]
     Route: 048
     Dates: start: 20060408
  5. LORATADINE [Concomitant]
     Route: 048
     Dates: start: 20090404
  6. FLUDROCORTISONE [Concomitant]
     Indication: ORTHOSTATIC HYPOTENSION
     Route: 048
     Dates: start: 20090419
  7. MIRALAX [Concomitant]
     Route: 048
     Dates: start: 20090329
  8. OGESTREL 0.5/50-21 [Concomitant]
     Indication: MENORRHAGIA
     Route: 048
     Dates: start: 20090414
  9. CERTAGEN [Concomitant]
     Route: 048
     Dates: start: 20060414
  10. FLONASE [Concomitant]
     Route: 045
     Dates: start: 20060414
  11. FOSAMAX [Concomitant]
     Indication: OSTEOPOROSIS
     Route: 048
     Dates: start: 20090227
  12. KEPPRA [Concomitant]
     Indication: LENNOX-GASTAUT SYNDROME
     Route: 048
     Dates: start: 20080910

REACTIONS (2)
  - DRUG INTERACTION [None]
  - RASH [None]
